FAERS Safety Report 12143720 (Version 1)
Quarter: 2016Q1

REPORT INFORMATION
  Report Type: Spontaneous
  Country: US (occurrence: US)
  Receive Date: 20160304
  Receipt Date: 20160304
  Transmission Date: 20160526
  Serious: No
  Sender: FDA-Public Use
  Company Number: US-JNJFOC-20160114251

PATIENT
  Age: 4 Year
  Sex: Female
  Weight: 18.14 kg

DRUGS (6)
  1. CHILDRENS ZYRTEC [Suspect]
     Active Substance: CETIRIZINE HYDROCHLORIDE
     Indication: NASAL PRURITUS
     Dosage: WAS ADMINISTERED 2.25ML TWICE ON DAY ONE. 5ML THE NEXT TWO DAYS.
     Route: 048
     Dates: start: 20160116, end: 20160116
  2. CHILDRENS ZYRTEC [Suspect]
     Active Substance: CETIRIZINE HYDROCHLORIDE
     Indication: COUGH
     Dosage: WAS ADMINISTERED 2.25ML TWICE ON DAY ONE. 5ML THE NEXT TWO DAYS.
     Route: 048
     Dates: start: 20160116, end: 20160116
  3. CHILDRENS ZYRTEC [Suspect]
     Active Substance: CETIRIZINE HYDROCHLORIDE
     Indication: COUGH
     Route: 048
     Dates: end: 20160118
  4. CHILDRENS ZYRTEC [Suspect]
     Active Substance: CETIRIZINE HYDROCHLORIDE
     Indication: NASAL PRURITUS
     Route: 048
     Dates: end: 20160118
  5. CHILDRENS ZYRTEC [Suspect]
     Active Substance: CETIRIZINE HYDROCHLORIDE
     Indication: RHINORRHOEA
     Dosage: WAS ADMINISTERED 2.25ML TWICE ON DAY ONE. 5ML THE NEXT TWO DAYS.
     Route: 048
     Dates: start: 20160116, end: 20160116
  6. CHILDRENS ZYRTEC [Suspect]
     Active Substance: CETIRIZINE HYDROCHLORIDE
     Indication: RHINORRHOEA
     Route: 048
     Dates: end: 20160118

REACTIONS (4)
  - Product use issue [Unknown]
  - Drug ineffective for unapproved indication [Unknown]
  - Product physical issue [Unknown]
  - Off label use [Unknown]

NARRATIVE: CASE EVENT DATE: 20160116
